FAERS Safety Report 6029151-5 (Version None)
Quarter: 2009Q1

REPORT INFORMATION
  Report Type: 
  Country: None (occurrence: None)
  Receive Date: 20090106
  Receipt Date: 20080814
  Transmission Date: 20090719
  Serious: No
  Sender: FDA-Public Use
  Company Number: US-TYCO HEALTHCARE/MALLINCKRODT-T200801354

PATIENT

DRUGS (1)
  1. OPTIMARK IN PLASTIC SYRINGES [Suspect]
     Indication: NUCLEAR MAGNETIC RESONANCE IMAGING
     Dosage: 18 ML (CC), SINGLE
     Route: 042
     Dates: start: 20080731, end: 20080731

REACTIONS (1)
  - DRUG INEFFECTIVE [None]
